FAERS Safety Report 16282083 (Version 3)
Quarter: 2019Q2

REPORT INFORMATION
  Report Type: Report from Study
  Country: US (occurrence: US)
  Receive Date: 20190507
  Receipt Date: 20190520
  Transmission Date: 20190711
  Serious: Yes (Hospitalization, Other)
  Sender: FDA-Public Use
  Company Number: US-GILEAD-2019-0406106

PATIENT
  Age: 72 Year
  Sex: Male
  Weight: 101.59 kg

DRUGS (3)
  1. REMODULIN [Suspect]
     Active Substance: TREPROSTINIL
     Indication: PULMONARY ARTERIAL HYPERTENSION
     Dosage: 2.5  MG/ML 16 NK/KG/MIN, CONTINUOUS
     Route: 058
     Dates: start: 20180406
  2. ELIQUIS [Concomitant]
     Active Substance: APIXABAN
  3. AMBRISENTAN [Suspect]
     Active Substance: AMBRISENTAN
     Indication: PULMONARY ARTERIAL HYPERTENSION
     Dosage: 5 MG, QD
     Route: 048
     Dates: start: 20181218

REACTIONS (3)
  - Thrombosis [Unknown]
  - Intentional dose omission [Recovered/Resolved]
  - Dyspnoea [Not Recovered/Not Resolved]
